FAERS Safety Report 13550144 (Version 1)
Quarter: 2017Q2

REPORT INFORMATION
  Report Type: Spontaneous
  Country: US (occurrence: US)
  Receive Date: 20170516
  Receipt Date: 20170516
  Transmission Date: 20170830
  Serious: Yes (Other)
  Sender: FDA-Public Use
  Company Number: US-BAYER-2017-086958

PATIENT
  Age: 32 Year
  Sex: Female

DRUGS (2)
  1. MIRENA [Suspect]
     Active Substance: LEVONORGESTREL
     Dosage: 20 MCG/24HR, CONT
     Route: 015
     Dates: start: 2011, end: 2013
  2. MIRENA [Suspect]
     Active Substance: LEVONORGESTREL
     Dosage: 20 MCG/24HR, CONT
     Route: 015
     Dates: start: 201606

REACTIONS (15)
  - Insomnia [None]
  - Vomiting [None]
  - Amenorrhoea [None]
  - Vision blurred [None]
  - Weight increased [None]
  - Headache [None]
  - Tinnitus [None]
  - Bronchitis [None]
  - Weight loss poor [None]
  - Abdominal pain lower [None]
  - Dizziness [None]
  - Eye movement disorder [None]
  - Asthenopia [None]
  - Eye haemorrhage [None]
  - Exophthalmos [None]

NARRATIVE: CASE EVENT DATE: 201608
